FAERS Safety Report 13187929 (Version 10)
Quarter: 2020Q3

REPORT INFORMATION
  Report Type: Spontaneous
  Country: US (occurrence: US)
  Receive Date: 20170206
  Receipt Date: 20200722
  Transmission Date: 20201102
  Serious: Yes (Congenital Anomaly, Other)
  Sender: FDA-Public Use
  Company Number: PHEH2017US003270

PATIENT
  Sex: Male

DRUGS (3)
  1. ZOFRAN [Suspect]
     Active Substance: ONDANSETRON HYDROCHLORIDE
     Indication: FOETAL EXPOSURE DURING PREGNANCY
     Route: 064
  2. ONDANSETRON [Suspect]
     Active Substance: ONDANSETRON
     Indication: FOETAL EXPOSURE DURING PREGNANCY
     Dosage: MOTHER DOSE: 4MG, UNK
     Route: 064
  3. ONDANSETRON HYDROCHLORIDE. [Suspect]
     Active Substance: ONDANSETRON HYDROCHLORIDE
     Indication: FOETAL EXPOSURE DURING PREGNANCY
     Dosage: MOTHER DOSE: 4MG, UNK
     Route: 064

REACTIONS (53)
  - Pyrexia [Unknown]
  - Constipation [Unknown]
  - Nasal congestion [Unknown]
  - Asymmetric gluteal fold [Unknown]
  - Speech disorder developmental [Unknown]
  - Arthralgia [Unknown]
  - Rash [Unknown]
  - Diarrhoea [Unknown]
  - Cardiac murmur [Unknown]
  - Speech disorder [Unknown]
  - Left-to-right cardiac shunt [Unknown]
  - Respiratory tract infection [Unknown]
  - Injury [Unknown]
  - Pain [Unknown]
  - Emotional distress [Unknown]
  - Cough [Unknown]
  - Vomiting [Unknown]
  - Eye discharge [Unknown]
  - Fine motor delay [Unknown]
  - Pain in extremity [Unknown]
  - Abdominal pain [Unknown]
  - Erythema [Unknown]
  - Insomnia [Unknown]
  - Feeding disorder [Unknown]
  - Anxiety [Unknown]
  - Screaming [Unknown]
  - Conjunctivitis [Unknown]
  - Urine odour abnormal [Unknown]
  - Right ventricular dilatation [Unknown]
  - Oropharyngeal pain [Unknown]
  - Chapped lips [Unknown]
  - Atrial septal defect [Unknown]
  - Congenital anomaly [Unknown]
  - Developmental hip dysplasia [Unknown]
  - Chiari network [Unknown]
  - Weight gain poor [Unknown]
  - Dermatitis [Unknown]
  - Swelling face [Unknown]
  - Foetal exposure during pregnancy [Unknown]
  - Rhinorrhoea [Unknown]
  - Otitis media acute [Recovered/Resolved]
  - Herpangina [Unknown]
  - Ear pain [Unknown]
  - Ear infection [Unknown]
  - Weight decreased [Unknown]
  - Pruritus [Unknown]
  - Periorbital oedema [Unknown]
  - Failure to thrive [Unknown]
  - Staphylococcal scalded skin syndrome [Unknown]
  - Anhedonia [Unknown]
  - Teething [Unknown]
  - Pharyngitis [Unknown]
  - Tonsillar exudate [Unknown]
